FAERS Safety Report 12860293 (Version 1)
Quarter: 2016Q4

REPORT INFORMATION
  Report Type: Spontaneous
  Country: US (occurrence: US)
  Receive Date: 20161019
  Receipt Date: 20161019
  Transmission Date: 20170207
  Serious: Yes (Other)
  Sender: FDA-Public Use
  Company Number: US-BELCHER PHARMACEUTICALS, LLC-2016VTS00202

PATIENT
  Sex: Female
  Weight: 68.27 kg

DRUGS (5)
  1. HYOSCYAMINE SULFATE. [Suspect]
     Active Substance: HYOSCYAMINE SULFATE
     Indication: FEEDING DISORDER
     Dosage: 0.125 MG, 2X/DAY
     Route: 048
     Dates: start: 20160405, end: 2016
  2. OMEPRAZOLE. [Concomitant]
     Active Substance: OMEPRAZOLE
  3. SUCRALFATE. [Concomitant]
     Active Substance: SUCRALFATE
     Dosage: 1 TABLETS, UNK
  4. DEXILANT [Concomitant]
     Active Substance: DEXLANSOPRAZOLE
  5. PAROXETINE. [Concomitant]
     Active Substance: PAROXETINE

REACTIONS (9)
  - Panic attack [Recovering/Resolving]
  - Dizziness [Recovered/Resolved]
  - Fall [Recovered/Resolved]
  - Fear of closed spaces [Recovered/Resolved]
  - Palpitations [Recovered/Resolved]
  - Upper limb fracture [Unknown]
  - Middle insomnia [Unknown]
  - Choking sensation [Unknown]
  - Fear [Recovered/Resolved]
